FAERS Safety Report 17001577 (Version 2)
Quarter: 2019Q4

REPORT INFORMATION
  Report Type: Spontaneous
  Country: US (occurrence: US)
  Receive Date: 20191106
  Receipt Date: 20191113
  Transmission Date: 20200122
  Serious: No
  Sender: FDA-Public Use
  Company Number: US-JNJFOC-20191100680

PATIENT
  Sex: Female
  Weight: 65.38 kg

DRUGS (1)
  1. ROGAINE [Suspect]
     Active Substance: MINOXIDIL
     Indication: PRODUCT USED FOR UNKNOWN INDICATION
     Dosage: FOLLOWED THE INSTRUCTION 2X A DAY
     Route: 061
     Dates: start: 20161031

REACTIONS (1)
  - Therapeutic product effect incomplete [Unknown]
